FAERS Safety Report 23310019 (Version 1)
Quarter: 2023Q4

REPORT INFORMATION
  Report Type: Spontaneous
  Country: US (occurrence: US)
  Receive Date: 20231218
  Receipt Date: 20231218
  Transmission Date: 20240110
  Serious: No
  Sender: FDA-Public Use
  Company Number: US-ABBVIE-2307596US

PATIENT
  Sex: Female

DRUGS (3)
  1. BOTOX [Suspect]
     Active Substance: ONABOTULINUMTOXINA
     Indication: Hypertonic bladder
     Dosage: TIME INTERVAL: AS NECESSARY
     Dates: start: 20161213, end: 20161213
  2. BOTOX [Suspect]
     Active Substance: ONABOTULINUMTOXINA
     Indication: Hypertonic bladder
     Dosage: TIME INTERVAL: AS NECESSARY
     Dates: start: 20150514, end: 20150514
  3. ESTRING [Concomitant]
     Active Substance: ESTRADIOL
     Indication: Product used for unknown indication

REACTIONS (7)
  - Hypertonic bladder [Unknown]
  - Cystitis [Unknown]
  - Urinary retention [Unknown]
  - Pollakiuria [Unknown]
  - Atrophic vulvovaginitis [Unknown]
  - Urge incontinence [Unknown]
  - Urinary hesitation [Unknown]
